FAERS Safety Report 9393258 (Version 2)
Quarter: 2013Q3

REPORT INFORMATION
  Report Type: Spontaneous
  Country: US (occurrence: US)
  Receive Date: 20130710
  Receipt Date: 20130724
  Transmission Date: 20140515
  Serious: Yes (Hospitalization, Other)
  Sender: FDA-Public Use
  Company Number: US-PFIZER INC-2013203301

PATIENT
  Age: 89 Year
  Sex: Female
  Weight: 62.59 kg

DRUGS (1)
  1. LYRICA [Suspect]
     Indication: PAIN
     Dosage: UNK, 2X/DAY
     Dates: end: 2013

REACTIONS (2)
  - Functional gastrointestinal disorder [Unknown]
  - Lip and/or oral cavity cancer [Unknown]
